FAERS Safety Report 6235307-9 (Version None)
Quarter: 2009Q2

REPORT INFORMATION
  Report Type: 
  Country: None (occurrence: None)
  Receive Date: 20090618
  Receipt Date: 20090614
  Transmission Date: 20091009
  Serious: Yes (Hospitalization)
  Sender: FDA-Public Use
  Company Number: KW-ABBOTT-09P-091-0579110-00

PATIENT
  Age: 54 Year
  Sex: Male

DRUGS (6)
  1. HUMIRA [Suspect]
     Indication: IRRITABLE BOWEL SYNDROME
     Dosage: LOADING DOSE
  2. HUMIRA [Suspect]
     Indication: COLITIS ULCERATIVE
     Dosage: SECOND DOSE -2 WEEKS LATER
  3. HUMIRA [Suspect]
  4. PREDNISONE [Concomitant]
     Indication: DRUG USE FOR UNKNOWN INDICATION
  5. PENTASA [Concomitant]
     Indication: DRUG USE FOR UNKNOWN INDICATION
  6. IMURAN [Concomitant]
     Indication: DRUG USE FOR UNKNOWN INDICATION

REACTIONS (3)
  - ARTERIOSCLEROSIS [None]
  - ILEAL STENOSIS [None]
  - PERIPHERAL ISCHAEMIA [None]
